FAERS Safety Report 15959627 (Version 1)
Quarter: 2019Q1

REPORT INFORMATION
  Report Type: Report from Study
  Country: NO (occurrence: NO)
  Receive Date: 20190214
  Receipt Date: 20190214
  Transmission Date: 20190417
  Serious: Yes (Other)
  Sender: FDA-Public Use
  Company Number: NO-TAKEDA-2019TJP003006AA

PATIENT

DRUGS (1)
  1. VEDOLIZUMAB [Suspect]
     Active Substance: VEDOLIZUMAB
     Indication: GRAFT VERSUS HOST DISEASE IN GASTROINTESTINAL TRACT
     Dosage: 300 MILLIGRAM
     Route: 042

REACTIONS (4)
  - Large intestinal haemorrhage [Unknown]
  - Large intestinal obstruction [Unknown]
  - Ileus [Unknown]
  - Off label use [Unknown]
